FAERS Safety Report 9531399 (Version 2)
Quarter: 2014Q2

REPORT INFORMATION
  Report Type: Spontaneous
  Country: US (occurrence: US)
  Receive Date: 20130918
  Receipt Date: 20140512
  Transmission Date: 20141212
  Serious: No
  Sender: FDA-Public Use
  Company Number: US-009507513-1309USA001797

PATIENT
  Sex: Female

DRUGS (2)
  1. ISENTRESS [Suspect]
     Indication: HIV INFECTION
     Dosage: 800 MG, BID
     Route: 048
  2. EFAVIRENZ [Interacting]
     Dosage: UNK
     Route: 048

REACTIONS (1)
  - Drug interaction [Not Recovered/Not Resolved]
